FAERS Safety Report 8328560-9 (Version None)
Quarter: 2012Q2

REPORT INFORMATION
  Report Type: 
  Country: None (occurrence: None)
  Receive Date: 20120502
  Receipt Date: 20120426
  Transmission Date: 20120825
  Serious: Yes (Other)
  Sender: FDA-Public Use
  Company Number: US-PFIZER INC-2012086366

PATIENT
  Sex: Female
  Weight: 53.061 kg

DRUGS (19)
  1. LYRICA [Suspect]
     Indication: PAIN
     Dosage: UNK
     Dates: start: 20090101
  2. PREDNISONE TAB [Suspect]
     Indication: BLISTER
     Dosage: UNK
     Dates: end: 20120301
  3. MOMETASONE FUROATE [Suspect]
     Indication: BLISTER
     Dosage: 0.1%
     Route: 061
  4. LYRICA [Suspect]
     Dosage: UNK
     Route: 048
     Dates: start: 20120301, end: 20120301
  5. CYMBALTA [Suspect]
     Indication: DEPRESSION
     Dosage: 60 MG, 2X/DAY
  6. KLONOPIN [Concomitant]
     Indication: MYOCLONUS
     Dosage: 2 MG, DAILY
  7. HYDROCODONE [Concomitant]
     Indication: BACK PAIN
  8. KLONOPIN [Concomitant]
     Indication: RESTLESS LEGS SYNDROME
  9. HYDROCODONE [Concomitant]
     Indication: NECK PAIN
     Dosage: 10/325 MG AS NEEDED
  10. LYRICA [Suspect]
     Dosage: 300 MG, UNK
  11. LYRICA [Suspect]
     Dosage: 50 MG, DAILY
     Route: 048
     Dates: start: 20120126, end: 20120228
  12. LYRICA [Suspect]
     Dosage: 150 MG, 2X/DAY
     Route: 048
     Dates: start: 20120229, end: 20120301
  13. TRAZODONE [Concomitant]
     Indication: MYOCLONUS
     Dosage: 50 MG, DAILY
  14. SIMVASTATIN [Concomitant]
     Indication: BLOOD CHOLESTEROL ABNORMAL
     Dosage: 20 MG, DAILY
  15. DESOXIMETASONE [Suspect]
     Indication: BLISTER
     Dosage: 0.05%
     Route: 061
     Dates: end: 20120301
  16. TRAZODONE [Concomitant]
     Indication: RESTLESS LEGS SYNDROME
  17. ATENOLOL [Concomitant]
     Indication: HYPERTENSION
     Dosage: 50 MG, 2X/DAY
  18. PRILOSEC [Concomitant]
     Indication: GASTROOESOPHAGEAL REFLUX DISEASE
     Dosage: 40 MG, 2X/DAY
  19. LOTREL [Concomitant]
     Indication: HYPERTENSION
     Dosage: 5/40 MG DAILY

REACTIONS (7)
  - DEPRESSION [None]
  - IRRITABILITY [None]
  - DRUG INEFFECTIVE [None]
  - HYPERHIDROSIS [None]
  - MOOD ALTERED [None]
  - PRURITUS [None]
  - BLISTER [None]
